FAERS Safety Report 25583022 (Version 1)
Quarter: 2025Q3

REPORT INFORMATION
  Report Type: Spontaneous
  Country: US (occurrence: US)
  Receive Date: 20250721
  Receipt Date: 20250721
  Transmission Date: 20251021
  Serious: Yes (Hospitalization, Other)
  Sender: CELLTRION
  Company Number: US-CELLTRION INC.-2025US023498

PATIENT

DRUGS (1)
  1. YUFLYMA [Suspect]
     Active Substance: ADALIMUMAB-AATY
     Indication: Crohn^s disease
     Route: 058
     Dates: start: 20250517

REACTIONS (6)
  - Crohn^s disease [Recovered/Resolved]
  - Enteritis [Recovered/Resolved]
  - Injection site haemorrhage [Recovered/Resolved]
  - Device malfunction [Recovered/Resolved]
  - Accidental exposure to product [Recovered/Resolved]
  - Exposure via skin contact [Recovered/Resolved]

NARRATIVE: CASE EVENT DATE: 20250704
